FAERS Safety Report 26099072 (Version 1)
Quarter: 2025Q4

REPORT INFORMATION
  Report Type: Spontaneous
  Country: CN (occurrence: CN)
  Receive Date: 20251128
  Receipt Date: 20251128
  Transmission Date: 20260117
  Serious: Yes (Other)
  Sender: QILU PHARMACEUTICAL
  Company Number: CN-QILU PHARMACEUTICAL CO.LTD.-QLU-000309-2025

PATIENT
  Age: 55 Year
  Sex: Male

DRUGS (18)
  1. CISPLATIN [Suspect]
     Active Substance: CISPLATIN
     Indication: Extragonadal primary germ cell tumour
     Dosage: FIRST CYCLE OF EP CHEMOTHERAPY
     Route: 065
     Dates: start: 20230220, end: 20230220
  2. CISPLATIN [Suspect]
     Active Substance: CISPLATIN
     Dosage: UNK
     Route: 065
     Dates: start: 20230408, end: 20230408
  3. CISPLATIN [Suspect]
     Active Substance: CISPLATIN
     Dosage: UNK
     Route: 065
     Dates: start: 20230621, end: 2023
  4. CISPLATIN [Suspect]
     Active Substance: CISPLATIN
     Dosage: UNK
     Route: 065
     Dates: start: 20230724, end: 20230724
  5. CISPLATIN [Suspect]
     Active Substance: CISPLATIN
     Dosage: UNK
     Route: 065
     Dates: start: 20230830, end: 20230830
  6. CISPLATIN [Suspect]
     Active Substance: CISPLATIN
     Dosage: UNK
     Route: 065
     Dates: start: 20230927, end: 20230927
  7. CISPLATIN [Suspect]
     Active Substance: CISPLATIN
     Dosage: UNK
     Route: 065
     Dates: start: 20230512, end: 20230512
  8. ETOPOSIDE [Suspect]
     Active Substance: ETOPOSIDE
     Indication: Extragonadal primary germ cell tumour
     Dosage: FIRST CYCLE OF EP
     Route: 065
     Dates: start: 20230220, end: 20230220
  9. ETOPOSIDE [Suspect]
     Active Substance: ETOPOSIDE
     Dosage: UNK
     Route: 065
     Dates: start: 20230408, end: 20230408
  10. ETOPOSIDE [Suspect]
     Active Substance: ETOPOSIDE
     Dosage: UNK
     Route: 065
     Dates: start: 20230621, end: 2023
  11. ETOPOSIDE [Suspect]
     Active Substance: ETOPOSIDE
     Dosage: UNK
     Route: 065
     Dates: start: 20230724, end: 20230724
  12. ETOPOSIDE [Suspect]
     Active Substance: ETOPOSIDE
     Dosage: UNK
     Route: 065
     Dates: start: 20230830, end: 20230830
  13. ETOPOSIDE [Suspect]
     Active Substance: ETOPOSIDE
     Dosage: UNK
     Route: 065
     Dates: start: 20230927, end: 20230927
  14. ETOPOSIDE [Suspect]
     Active Substance: ETOPOSIDE
     Dosage: UNK
     Route: 065
     Dates: start: 20230512, end: 20230512
  15. SINTILIMAB [Suspect]
     Active Substance: SINTILIMAB
     Indication: Extragonadal primary germ cell tumour
     Dosage: UNK
     Route: 065
     Dates: start: 20230621, end: 2023
  16. SINTILIMAB [Suspect]
     Active Substance: SINTILIMAB
     Dosage: UNK
     Route: 065
     Dates: start: 20230724, end: 20230724
  17. SINTILIMAB [Suspect]
     Active Substance: SINTILIMAB
     Dosage: UNK
     Route: 065
     Dates: start: 20230830, end: 20230830
  18. SINTILIMAB [Suspect]
     Active Substance: SINTILIMAB
     Dosage: UNK
     Route: 065
     Dates: start: 20230927, end: 20230927

REACTIONS (2)
  - Pneumonitis [Recovered/Resolved]
  - Drug effective for unapproved indication [Unknown]

NARRATIVE: CASE EVENT DATE: 20230101
